FAERS Safety Report 4268517-0 (Version None)
Quarter: 2004Q1

REPORT INFORMATION
  Report Type: 
  Country: None (occurrence: None)
  Receive Date: 20040108
  Receipt Date: 20031224
  Transmission Date: 20041129
  Serious: Yes (Hospitalization)
  Sender: FDA-Public Use
  Company Number: 187458

PATIENT
  Age: 37 Year
  Sex: Female
  Weight: 50.8029 kg

DRUGS (4)
  1. AVONEX [Suspect]
     Indication: MULTIPLE SCLEROSIS
     Dosage: 30 MCG QW IM
     Route: 030
     Dates: start: 20000101, end: 20031001
  2. AVONEX [Suspect]
     Indication: MULTIPLE SCLEROSIS
     Dosage: 30 MCG QW IM
     Route: 030
     Dates: start: 20031001
  3. VICODIN [Concomitant]
  4. PREDNISONE [Concomitant]

REACTIONS (12)
  - BLOOD PRESSURE FLUCTUATION [None]
  - CAROTID ARTERY DISEASE [None]
  - CEREBROVASCULAR DISORDER [None]
  - DEHYDRATION [None]
  - DEPRESSION [None]
  - DIFFICULTY IN WALKING [None]
  - FALL [None]
  - HEART RATE INCREASED [None]
  - PAIN [None]
  - STRESS SYMPTOMS [None]
  - SYNCOPE [None]
  - WEIGHT DECREASED [None]
